FAERS Safety Report 6648040-6 (Version None)
Quarter: 2010Q1

REPORT INFORMATION
  Report Type: 
  Country: None (occurrence: None)
  Receive Date: 20100324
  Receipt Date: 20100311
  Transmission Date: 20100710
  Serious: Yes (Hospitalization)
  Sender: FDA-Public Use
  Company Number: PHHY2010IR14705

PATIENT
  Age: 53 Year
  Sex: Male
  Weight: 45 kg

DRUGS (1)
  1. ACLASTA [Suspect]
     Indication: OSTEOPOROSIS
     Dosage: 5 MG YEARLY
     Route: 042
     Dates: start: 20100301

REACTIONS (5)
  - CHEST PAIN [None]
  - DIARRHOEA [None]
  - PYREXIA [None]
  - SYNCOPE [None]
  - VOMITING [None]
